FAERS Safety Report 15710271 (Version 1)
Quarter: 2018Q4

REPORT INFORMATION
  Report Type: Spontaneous
  Country: US (occurrence: US)
  Receive Date: 20181211
  Receipt Date: 20181211
  Transmission Date: 20190205
  Serious: Yes (Hospitalization, Other)
  Sender: FDA-Public Use
  Company Number: US-JUBILANT PHARMA LTD-2018US001305

PATIENT

DRUGS (3)
  1. STANDARDIZED MITE MIX, DERMATOPHAGOIDES PTERONYSSINUS AND DERMATOPHAGOIDES FARIN [Suspect]
     Active Substance: DERMATOPHAGOIDES FARINAE\DERMATOPHAGOIDES PTERONYSSINUS
     Indication: HYPERSENSITIVITY
     Dosage: UNK
     Dates: start: 20181123, end: 20181123
  2. VITAMIN D2 [Concomitant]
     Active Substance: ERGOCALCIFEROL
     Dosage: UNK
  3. POLLENS - WEEDS, GIANT, SHORT, WESTERN RAGWEED MIX [Suspect]
     Active Substance: AMBROSIA ARTEMISIIFOLIA POLLEN\AMBROSIA PSILOSTACHYA POLLEN\AMBROSIA TRIFIDA POLLEN
     Indication: HYPERSENSITIVITY
     Dosage: UNK
     Dates: start: 20181123, end: 20181123

REACTIONS (8)
  - Hypersensitivity [Recovered/Resolved]
  - Nasal congestion [Recovered/Resolved]
  - Anaphylactic reaction [Recovered/Resolved]
  - Urticaria [Recovered/Resolved]
  - Pharyngeal oedema [Recovered/Resolved]
  - Lacrimation increased [Recovered/Resolved]
  - Wheezing [Recovered/Resolved]
  - Eye pruritus [Recovered/Resolved]

NARRATIVE: CASE EVENT DATE: 20181123
